FAERS Safety Report 8403180-6 (Version None)
Quarter: 2012Q2

REPORT INFORMATION
  Report Type: 
  Country: None (occurrence: None)
  Receive Date: 20120601
  Receipt Date: 20120522
  Transmission Date: 20120825
  Serious: Yes (Other)
  Sender: FDA-Public Use
  Company Number: US-JNJFOC-20120518417

PATIENT
  Age: 72 Year
  Sex: Male

DRUGS (3)
  1. PREDNISONE TAB [Concomitant]
     Route: 048
  2. REMICADE [Suspect]
     Indication: RHEUMATOID ARTHRITIS
     Dosage: 300 TO 400 MG
     Route: 042
     Dates: start: 20091203, end: 20120329
  3. METHOTREXATE [Concomitant]
     Dosage: 15-20 MG
     Dates: start: 20081027

REACTIONS (1)
  - LYMPHOMA [None]
